FAERS Safety Report 7703592-X (Version None)
Quarter: 2011Q3

REPORT INFORMATION
  Report Type: 
  Country: None (occurrence: None)
  Receive Date: 20110823
  Receipt Date: 20110819
  Transmission Date: 20111222
  Serious: Yes (Death, Hospitalization, Other)
  Sender: FDA-Public Use
  Company Number: PHHY2011JP55749

PATIENT
  Sex: Female
  Weight: 50 kg

DRUGS (6)
  1. CEFAZOLIN [Suspect]
     Indication: INFECTION PROPHYLAXIS
     Dosage: 1 G, QD
     Route: 041
     Dates: start: 20110401, end: 20110404
  2. UNASYN [Suspect]
     Indication: INFECTION PROPHYLAXIS
     Dosage: 0.063 G, QD
     Route: 041
     Dates: start: 20110406, end: 20110408
  3. SUNRYTHM [Suspect]
     Indication: ATRIAL FIBRILLATION
     Dosage: 100 MG, QD
     Route: 048
     Dates: start: 20050201, end: 20110321
  4. LACTEC [Concomitant]
     Dosage: UNK UKN, UNK
     Route: 042
  5. FLOMOX [Suspect]
     Indication: INFECTION PROPHYLAXIS
     Dosage: 200 MG, QD
     Route: 048
     Dates: start: 20110426, end: 20110429
  6. TEGRETOL [Suspect]
     Indication: EPILEPSY
     Dosage: 200 MG, BID
     Route: 048
     Dates: start: 20110105, end: 20110410

REACTIONS (24)
  - KIDNEY ENLARGEMENT [None]
  - BLOOD UREA INCREASED [None]
  - HAEMATOCRIT DECREASED [None]
  - LYMPHOCYTE COUNT DECREASED [None]
  - DEPRESSED LEVEL OF CONSCIOUSNESS [None]
  - POST PROCEDURAL SEPSIS [None]
  - PULMONARY FIBROSIS [None]
  - MONOCYTE COUNT INCREASED [None]
  - RED BLOOD CELL COUNT DECREASED [None]
  - DISSEMINATED INTRAVASCULAR COAGULATION [None]
  - HAEMOGLOBIN DECREASED [None]
  - SPLENOMEGALY [None]
  - BLOOD CREATININE INCREASED [None]
  - GAMMA-GLUTAMYLTRANSFERASE INCREASED [None]
  - HEPATOMEGALY [None]
  - CLOSTRIDIUM TEST POSITIVE [None]
  - FEMUR FRACTURE [None]
  - EOSINOPHIL COUNT INCREASED [None]
  - PSEUDOMEMBRANOUS COLITIS [None]
  - RENAL DISORDER [None]
  - HEART RATE DECREASED [None]
  - BRADYCARDIA [None]
  - FALL [None]
  - TUBULOINTERSTITIAL NEPHRITIS [None]
